FAERS Safety Report 19980575 (Version 1)
Quarter: 2021Q4

REPORT INFORMATION
  Report Type: Spontaneous
  Country: CN (occurrence: CN)
  Receive Date: 20211021
  Receipt Date: 20211021
  Transmission Date: 20220303
  Serious: Yes (Hospitalization)
  Sender: FDA-Public Use
  Company Number: CN-ELI_LILLY_AND_COMPANY-CN202110007194

PATIENT
  Age: 42 Year
  Sex: Male
  Weight: 60 kg

DRUGS (2)
  1. HUMULIN R [Suspect]
     Active Substance: INSULIN HUMAN
     Indication: Type 1 diabetes mellitus
     Dosage: 17 U, EACH MORNING
     Route: 058
     Dates: start: 2001
  2. HUMULIN R [Suspect]
     Active Substance: INSULIN HUMAN
     Dosage: 13 U, DAILY (NIGHT)
     Route: 058
     Dates: start: 2001

REACTIONS (2)
  - Blood glucose increased [Unknown]
  - Eye disorder [Unknown]
